FAERS Safety Report 4783217-6 (Version None)
Quarter: 2005Q3

REPORT INFORMATION
  Report Type: 
  Country: None (occurrence: None)
  Receive Date: 20050914
  Receipt Date: 20050613
  Transmission Date: 20060218
  Serious: Yes (Hospitalization)
  Sender: FDA-Public Use
  Company Number: 163-20785-05060241

PATIENT
  Age: 46 Year
  Sex: Female
  Weight: 54.4316 kg

DRUGS (8)
  1. THALOMID [Suspect]
     Indication: BREAST CANCER METASTATIC
     Dosage: 100 MG, Q HS, ORAL
     Route: 048
     Dates: start: 20040512, end: 20050313
  2. XELODA [Suspect]
     Indication: BREAST CANCER METASTATIC
     Dosage: 1000 MG, TWICE A DAY, ORAL
     Route: 048
     Dates: start: 20040512, end: 20050313
  3. TEMAZEPAM [Concomitant]
  4. MORPHINE [Concomitant]
  5. VALDECOXIB [Concomitant]
  6. DECADRON [Concomitant]
  7. TORSEMIDE (TORASEMIDE) [Concomitant]
  8. LIBRIUM [Concomitant]

REACTIONS (2)
  - DISEASE PROGRESSION [None]
  - PAIN IN EXTREMITY [None]
